FAERS Safety Report 18209517 (Version 1)
Quarter: 2020Q3

REPORT INFORMATION
  Report Type: Spontaneous
  Country: FR (occurrence: FR)
  Receive Date: 20200828
  Receipt Date: 20200828
  Transmission Date: 20201103
  Serious: Yes (Hospitalization)
  Sender: FDA-Public Use
  Company Number: FR-009507513-2008FRA012440

PATIENT
  Age: 65 Year
  Sex: Male
  Weight: 95 kg

DRUGS (15)
  1. CALCIPARINE [Suspect]
     Active Substance: HEPARIN CALCIUM
     Indication: EMBOLISM VENOUS
     Dosage: 10000 INTERNATIONAL UNIT, QD; STRENGTH 5000 IU/0,2 ML
     Route: 058
     Dates: start: 20200517, end: 20200621
  2. DESLORATADINE. [Concomitant]
     Active Substance: DESLORATADINE
     Indication: HYPERSENSITIVITY
     Route: 048
     Dates: start: 20200608
  3. ACETAMINOPHEN. [Concomitant]
     Active Substance: ACETAMINOPHEN
     Indication: PAIN
     Dosage: IF PAIN
     Route: 048
     Dates: start: 20200517
  4. ACTOSOLV [Concomitant]
     Indication: ADMINISTRATION SITE THROMBOSIS
     Dosage: 5000 INTERNATIONAL UNIT, QD
     Route: 042
     Dates: start: 20200621, end: 20200621
  5. LANSOPRAZOLE. [Concomitant]
     Active Substance: LANSOPRAZOLE
     Indication: GASTROOESOPHAGEAL REFLUX DISEASE
     Dosage: INSTEAD OF RABEPRAZOLE DURING THE TIME OF HOSPITALIZATION
     Route: 048
     Dates: start: 20200517
  6. RIFADIN [Suspect]
     Active Substance: RIFAMPIN
     Indication: STAPHYLOCOCCAL INFECTION
     Dosage: 1200 MILLIGRAM, QD
     Route: 048
     Dates: start: 20200528, end: 20200621
  7. BISOCE [Concomitant]
     Active Substance: BISOPROLOL
     Indication: MYOCARDIAL ISCHAEMIA
     Dosage: 10 MILLIGRAM, QD; FORMULATION: SCORED FILM COATED TABLET
     Route: 048
  8. FUROSEMIDE. [Concomitant]
     Active Substance: FUROSEMIDE
     Indication: HYPERTENSION
     Dosage: 60 MILLIGRAM, QD
     Route: 048
  9. TRAMADOL HYDROCHLORIDE. [Concomitant]
     Active Substance: TRAMADOL HYDROCHLORIDE
     Indication: PAIN
     Dosage: IF PAIN NOT RELIEVED BY PARACETAMOL
     Route: 048
     Dates: start: 20200612
  10. KARDEGIC [Concomitant]
     Active Substance: ASPIRIN DL-LYSINE
     Indication: CEREBROVASCULAR ACCIDENT
     Dosage: 300 MILLIGRAM, QD; FORMULATION: POWDER FOR ORAL SOLUTION IN SACHET
     Route: 048
     Dates: start: 20200517
  11. DAPTOMYCIN. [Suspect]
     Active Substance: DAPTOMYCIN
     Indication: STAPHYLOCOCCAL INFECTION
     Dosage: EVERY 48 HOURS FROM 03?JUN?2020
     Route: 042
     Dates: start: 20200528, end: 20200621
  12. ALBUTEROL. [Concomitant]
     Active Substance: ALBUTEROL
     Indication: CHRONIC OBSTRUCTIVE PULMONARY DISEASE
     Dosage: IN AEROSOL
     Route: 055
     Dates: start: 20200601
  13. CORDARONE [Concomitant]
     Active Substance: AMIODARONE HYDROCHLORIDE
     Indication: MYOCARDIAL ISCHAEMIA
     Dosage: 200 MILLIGRAM, QD
     Route: 048
     Dates: start: 20200525
  14. ICATIBANT ACETATE [Concomitant]
     Active Substance: ICATIBANT ACETATE
     Indication: ANGIOEDEMA
     Route: 042
     Dates: start: 20200609
  15. ATROVENT [Concomitant]
     Active Substance: IPRATROPIUM BROMIDE
     Indication: CHRONIC OBSTRUCTIVE PULMONARY DISEASE
     Dosage: IN AEROSOL
     Route: 055
     Dates: start: 20200531

REACTIONS (1)
  - Hypersensitivity vasculitis [Recovered/Resolved]

NARRATIVE: CASE EVENT DATE: 20200611
